FAERS Safety Report 21551623 (Version 3)
Quarter: 2022Q4

REPORT INFORMATION
  Report Type: Report from Study
  Country: US (occurrence: US)
  Receive Date: 20221103
  Receipt Date: 20221220
  Transmission Date: 20230112
  Serious: Yes (Hospitalization)
  Sender: FDA-Public Use
  Company Number: US-ABBVIE-22K-163-4430831-00

PATIENT
  Age: 61 Year
  Sex: Female

DRUGS (9)
  1. HUMIRA [Suspect]
     Active Substance: ADALIMUMAB
     Indication: Crohn^s disease
     Route: 058
     Dates: start: 202201, end: 20220502
  2. HUMIRA [Suspect]
     Active Substance: ADALIMUMAB
     Dosage: PAUSE FROM MAY-OCTOBER 2022
     Route: 058
     Dates: start: 202210
  3. HUMIRA [Suspect]
     Active Substance: ADALIMUMAB
     Route: 058
  4. MODERNA COVID-19 VACCINE [Concomitant]
     Active Substance: ELASOMERAN
     Indication: COVID-19 immunisation
     Dosage: 1ST DOSE?ONE IN ONECE
     Route: 030
  5. MODERNA COVID-19 VACCINE [Concomitant]
     Active Substance: ELASOMERAN
     Indication: COVID-19 immunisation
     Dosage: 2ND DOSE?ONE IN ONCE
     Route: 030
  6. MODERNA COVID-19 VACCINE [Concomitant]
     Active Substance: ELASOMERAN
     Indication: COVID-19 immunisation
     Dosage: BOOSTER DOSE?ONE IN ONCE
     Route: 030
  7. FORTEO [Concomitant]
     Active Substance: TERIPARATIDE
     Indication: Product used for unknown indication
  8. METHOTREXATE [Concomitant]
     Active Substance: METHOTREXATE
     Indication: Product used for unknown indication
  9. PAXLOVID [Concomitant]
     Active Substance: NIRMATRELVIR\RITONAVIR
     Indication: Product used for unknown indication

REACTIONS (19)
  - Escherichia urinary tract infection [Not Recovered/Not Resolved]
  - Osteopenia [Unknown]
  - Therapeutic product effect incomplete [Unknown]
  - Arthralgia [Unknown]
  - Oxygen saturation decreased [Unknown]
  - Abnormal faeces [Unknown]
  - Feeling abnormal [Unknown]
  - Haemorrhage [Unknown]
  - Urine abnormality [Unknown]
  - Blood urine present [Unknown]
  - Muscle spasms [Unknown]
  - Osteoporosis [Unknown]
  - Bone pain [Unknown]
  - Crohn^s disease [Unknown]
  - Proctitis [Unknown]
  - Malaise [Unknown]
  - COVID-19 [Recovering/Resolving]
  - Groin pain [Unknown]
  - Faeces hard [Unknown]

NARRATIVE: CASE EVENT DATE: 20220501
